FAERS Safety Report 9547450 (Version 2)
Quarter: 2014Q1

REPORT INFORMATION
  Report Type: Spontaneous
  Country: US (occurrence: None)
  Receive Date: 20130606
  Receipt Date: 20130906
  Transmission Date: 20141002
  Serious: No
  Sender: FDA-Public Use
  Company Number: 163-POMAL-13050016

PATIENT
  Age: 69 Year
  Sex: Female

DRUGS (1)
  1. POMALYST (POMALIDOMIDE) (1 MILLIGRAM, CAPSULES) [Suspect]
     Indication: PLASMA CELL MYELOMA
     Dosage: 1 MG, 21 IN 28 D, PO
     Route: 048
     Dates: start: 20130323

REACTIONS (2)
  - Neuropathy peripheral [None]
  - Burning sensation [None]
